FAERS Safety Report 9696345 (Version 2)
Quarter: 2013Q4

REPORT INFORMATION
  Report Type: Spontaneous
  Country: US (occurrence: US)
  Receive Date: 20131119
  Receipt Date: 20131119
  Transmission Date: 20140711
  Serious: No
  Sender: FDA-Public Use
  Company Number: US-TEVA-369103USA

PATIENT
  Sex: 0

DRUGS (1)
  1. OXALIPLATIN [Suspect]

REACTIONS (5)
  - Tremor [Unknown]
  - Chills [Unknown]
  - Back pain [Unknown]
  - Lip swelling [Unknown]
  - Erythema [Unknown]
